FAERS Safety Report 6853246-7 (Version None)
Quarter: 2010Q3

REPORT INFORMATION
  Report Type: 
  Country: None (occurrence: None)
  Receive Date: 20100717
  Receipt Date: 20071203
  Transmission Date: 20110219
  Serious: No
  Sender: FDA-Public Use
  Company Number: US-PFIZER INC-2007103664

PATIENT
  Sex: Female
  Weight: 56.2 kg

DRUGS (5)
  1. CHANTIX [Suspect]
     Dates: start: 20070901
  2. ATENOLOL [Concomitant]
     Indication: HYPERTENSION
  3. TRAZODONE HYDROCHLORIDE [Concomitant]
  4. CELEXA [Concomitant]
  5. ZYRTEC [Concomitant]

REACTIONS (2)
  - NAUSEA [None]
  - VOMITING [None]
